FAERS Safety Report 16980971 (Version 1)
Quarter: 2019Q4

REPORT INFORMATION
  Report Type: Spontaneous
  Country: US (occurrence: US)
  Receive Date: 20191031
  Receipt Date: 20191031
  Transmission Date: 20200122
  Serious: Yes (Life-Threatening, Other)
  Sender: FDA-Public Use
  Company Number: US-SA-2019SA296615

PATIENT
  Age: 63 Year
  Sex: Male

DRUGS (3)
  1. ENOXAPARIN SODIUM. [Suspect]
     Active Substance: ENOXAPARIN SODIUM
     Dosage: 150 MG, QD
     Dates: start: 20191013, end: 20191014
  2. DIPHENHYDRAMINE HYDROCHLORIDE. [Suspect]
     Active Substance: DIPHENHYDRAMINE HYDROCHLORIDE
     Dosage: UNK
  3. EPINEPHRINE. [Suspect]
     Active Substance: EPINEPHRINE

REACTIONS (10)
  - Anaphylactic shock [Recovered/Resolved]
  - Blood pressure abnormal [Unknown]
  - Palpitations [Unknown]
  - Chest pain [Unknown]
  - Wheezing [Unknown]
  - Dyspepsia [Unknown]
  - Feeling abnormal [Unknown]
  - Pain [Unknown]
  - Heart rate increased [Unknown]
  - Malaise [Unknown]

NARRATIVE: CASE EVENT DATE: 20191014
